FAERS Safety Report 13088609 (Version 1)
Quarter: 2016Q4

REPORT INFORMATION
  Report Type: Spontaneous
  Country: US (occurrence: US)
  Receive Date: 20161230
  Receipt Date: 20161230
  Transmission Date: 20170207
  Serious: Yes (Other)
  Sender: FDA-Public Use
  Company Number: None

PATIENT
  Age: 66 Year
  Sex: Female
  Weight: 58.05 kg

DRUGS (17)
  1. GLIPIZIDE ER [Concomitant]
     Active Substance: GLIPIZIDE
  2. COZAAR [Concomitant]
     Active Substance: LOSARTAN POTASSIUM
  3. FERROUS FUMERATE [Concomitant]
     Active Substance: FERROUS FUMARATE
  4. VITAMIN D [Concomitant]
     Active Substance: CHOLECALCIFEROL
  5. CLONIDINE. [Concomitant]
     Active Substance: CLONIDINE
  6. QUETIAPINE. [Concomitant]
     Active Substance: QUETIAPINE
  7. POLYETHYLENE GLYCOL [Concomitant]
     Active Substance: POLYETHYLENE GLYCOLS
  8. ATORVASTATIN [Concomitant]
     Active Substance: ATORVASTATIN
  9. MELATONIN [Concomitant]
     Active Substance: MELATONIN
  10. FUROSEMIDE. [Concomitant]
     Active Substance: FUROSEMIDE
  11. LABETOLOL [Concomitant]
     Active Substance: LABETALOL HYDROCHLORIDE
  12. ODEFSEY [Suspect]
     Active Substance: EMTRICITABINE\RILPIVIRINE HYDROCHLORIDE\TENOFOVIR ALAFENAMIDE FUMARATE
     Indication: HIV INFECTION
  13. INSULIN LISPRO [Concomitant]
     Active Substance: INSULIN LISPRO
  14. ASA [Concomitant]
     Active Substance: ASPIRIN
  15. MARICEPT [Concomitant]
  16. LORATIDINE [Concomitant]
     Active Substance: LORATADINE
  17. COLACE [Concomitant]
     Active Substance: DOCUSATE SODIUM

REACTIONS (3)
  - Drug effect decreased [None]
  - Product substitution issue [None]
  - Blood HIV RNA increased [None]

NARRATIVE: CASE EVENT DATE: 20161010
